FAERS Safety Report 5756533-9 (Version None)
Quarter: 2008Q2

REPORT INFORMATION
  Report Type: 
  Country: None (occurrence: None)
  Receive Date: 20080603
  Receipt Date: 20080520
  Transmission Date: 20081010
  Serious: Yes (Hospitalization)
  Sender: FDA-Public Use
  Company Number: ES-KINGPHARMUSA00001-K200800576

PATIENT
  Age: 72 Year
  Sex: Female

DRUGS (3)
  1. LEVOXYL [Suspect]
     Indication: HYPOTHYROIDISM
     Dosage: 50 MCG, QD
     Route: 048
  2. ENALAPRIL MALEATE AND HYDROCHLOROTHIAZIDE [Concomitant]
     Indication: HYPERTENSION
  3. ZUCLOPENTHIXOL [Concomitant]
     Indication: SCHIZOPHRENIA

REACTIONS (2)
  - TYPE I HYPERSENSITIVITY [None]
  - URTICARIA [None]
